FAERS Safety Report 5447799-3 (Version None)
Quarter: 2007Q3

REPORT INFORMATION
  Report Type: 
  Country: None (occurrence: None)
  Receive Date: 20070910
  Receipt Date: 20070903
  Transmission Date: 20080115
  Serious: Yes (Other)
  Sender: FDA-Public Use
  Company Number: BR-ASTRAZENECA-2007UW20900

PATIENT
  Age: 5 Year

DRUGS (1)
  1. ZESTRIL [Suspect]
     Route: 048

REACTIONS (2)
  - ACCIDENTAL EXPOSURE [None]
  - MEDICATION ERROR [None]
